FAERS Safety Report 13696614 (Version 3)
Quarter: 2017Q3

REPORT INFORMATION
  Report Type: Spontaneous
  Country: JP (occurrence: JP)
  Receive Date: 20170628
  Receipt Date: 20170706
  Transmission Date: 20171127
  Serious: Yes (Hospitalization)
  Sender: FDA-Public Use
  Company Number: JP-ROCHE-1956702

PATIENT
  Age: 72 Year
  Sex: Male

DRUGS (1)
  1. CEFTRIAXONE. [Suspect]
     Active Substance: CEFTRIAXONE
     Indication: MENINGITIS
     Dosage: DOSAGE IS UNCERTAIN
     Route: 042

REACTIONS (5)
  - C-reactive protein increased [Unknown]
  - Abdominal pain [Unknown]
  - Gallbladder enlargement [Unknown]
  - White blood cell count increased [Unknown]
  - Cholecystitis acute [Unknown]
